FAERS Safety Report 4276664-2 (Version None)
Quarter: 2004Q1

REPORT INFORMATION
  Report Type: 
  Country: None (occurrence: None)
  Receive Date: 20040120
  Receipt Date: 20040114
  Transmission Date: 20041129
  Serious: Yes (Life-Threatening)
  Sender: FDA-Public Use
  Company Number: 2004IC000002

PATIENT
  Age: 54 Year
  Sex: Female

DRUGS (5)
  1. FLUOROURACIL [Suspect]
     Indication: BREAST CANCER
     Dosage: 950 MG; INTRAVENOUS
     Route: 042
     Dates: start: 20030710, end: 20030829
  2. ENDOXAN [Concomitant]
  3. METHOTREXATE [Concomitant]
  4. SEROTONE [Concomitant]
  5. RINDERON [Concomitant]

REACTIONS (2)
  - LEUKOENCEPHALOPATHY [None]
  - SPEECH DISORDER [None]
